FAERS Safety Report 5630431-3 (Version None)
Quarter: 2008Q1

REPORT INFORMATION
  Report Type: 
  Country: None (occurrence: None)
  Receive Date: 20080219
  Receipt Date: 20080214
  Transmission Date: 20080703
  Serious: Yes (Hospitalization)
  Sender: FDA-Public Use
  Company Number: FR-BRISTOL-MYERS SQUIBB COMPANY-14077804

PATIENT
  Age: 85 Year
  Sex: Female

DRUGS (3)
  1. APROVEL FILM-COATED TABS 300 MG [Suspect]
     Dates: start: 20071007, end: 20071219
  2. VASTAREL [Suspect]
     Dates: start: 20071203, end: 20071219
  3. AMARYL [Suspect]
     Dates: start: 20071007, end: 20071211

REACTIONS (2)
  - PHOTOSENSITIVITY REACTION [None]
  - RASH [None]
